FAERS Safety Report 5115349-7 (Version None)
Quarter: 2006Q3

REPORT INFORMATION
  Report Type: 
  Country: None (occurrence: None)
  Receive Date: 20060922
  Receipt Date: 20060914
  Transmission Date: 20061208
  Serious: Yes (Hospitalization)
  Sender: FDA-Public Use
  Company Number: GXKR2006DE05759

PATIENT
  Age: 71 Year
  Sex: Female
  Weight: 58 kg

DRUGS (7)
  1. PARACETAMOL (NGX) (PARACETAMOL) [Suspect]
     Dosage: ORAL
     Route: 048
  2. PHENPROCOUMON (PHENPROCOUMON) [Concomitant]
  3. DIGOXIN [Concomitant]
  4. TORSEMIDE [Concomitant]
  5. VERAPAMIL [Concomitant]
  6. MIRTAZAPINE [Concomitant]
  7. PANTOPRAZOLE SODIUM [Concomitant]

REACTIONS (6)
  - ABDOMINAL PAIN UPPER [None]
  - BEZOAR [None]
  - CHEST PAIN [None]
  - DYSPHAGIA [None]
  - INTERNATIONAL NORMALISED RATIO INCREASED [None]
  - WRONG TECHNIQUE IN DRUG USAGE PROCESS [None]
